FAERS Safety Report 15572942 (Version 12)
Quarter: 2020Q1

REPORT INFORMATION
  Report Type: Report from Study
  Country: None (occurrence: FR)
  Receive Date: 20181031
  Receipt Date: 20200219
  Transmission Date: 20200409
  Serious: Yes (Death, Other)
  Sender: FDA-Public Use
  Company Number: FR-ABBVIE-18K-056-2534936-00

PATIENT
  Age: 79 Year
  Sex: Male
  Weight: 64 kg

DRUGS (22)
  1. VENCLYXTO [Suspect]
     Active Substance: VENETOCLAX
     Indication: CHRONIC LYMPHOCYTIC LEUKAEMIA
     Route: 048
     Dates: start: 20181005, end: 20181011
  2. VENCLYXTO [Suspect]
     Active Substance: VENETOCLAX
     Route: 048
     Dates: start: 20181012, end: 20181017
  3. AMBISOME [Concomitant]
     Active Substance: AMPHOTERICIN B
     Indication: INFECTION
     Dates: start: 20180930, end: 20181012
  4. FUROSEMIDE. [Concomitant]
     Active Substance: FUROSEMIDE
     Dates: start: 20181024, end: 20181024
  5. FOLIC ACID. [Concomitant]
     Active Substance: FOLIC ACID
     Indication: PROPHYLAXIS
     Dates: start: 20181010, end: 20181105
  6. MIDAZOLAM HYDROCHLORIDE. [Concomitant]
     Active Substance: MIDAZOLAM HYDROCHLORIDE
     Indication: PRODUCT USED FOR UNKNOWN INDICATION
     Dates: end: 20181108
  7. VENCLYXTO [Suspect]
     Active Substance: VENETOCLAX
     Route: 048
     Dates: start: 20181018, end: 20181104
  8. RASBURICASE [Concomitant]
     Active Substance: RASBURICASE
     Indication: HYPERURICAEMIA
     Dates: start: 20181007, end: 20181007
  9. ATOVAQUONE. [Concomitant]
     Active Substance: ATOVAQUONE
     Indication: INFECTION
     Dates: start: 20181018, end: 20181105
  10. OFLOXACIN. [Concomitant]
     Active Substance: OFLOXACIN
     Indication: INFECTION
     Dates: start: 20180928, end: 20181005
  11. DAPTOMYCINE [Concomitant]
     Active Substance: DAPTOMYCIN
     Indication: INFECTION
     Dates: start: 20181103, end: 20181105
  12. VENCLYXTO [Suspect]
     Active Substance: VENETOCLAX
     Route: 048
     Dates: end: 20181108
  13. ALLOPURINOL. [Concomitant]
     Active Substance: ALLOPURINOL
     Indication: PROPHYLAXIS
     Dates: start: 20180927, end: 20181019
  14. VALACICLOVIR [Concomitant]
     Active Substance: VALACYCLOVIR HYDROCHLORIDE
     Indication: INFECTION PROPHYLAXIS
     Dates: start: 20180917, end: 20181105
  15. FUROSEMIDE. [Concomitant]
     Active Substance: FUROSEMIDE
     Indication: CARDIOVASCULAR DISORDER
     Dates: start: 20181009, end: 20181009
  16. IMIPENEM AND CILASTATIN [Concomitant]
     Active Substance: CILASTATIN SODIUM\IMIPENEM
     Indication: INFECTION
     Dates: start: 20180927, end: 20181005
  17. MORPHINE [Concomitant]
     Active Substance: MORPHINE
     Indication: PRODUCT USED FOR UNKNOWN INDICATION
     Dates: end: 20181108
  18. LANSOPRAZOLE. [Concomitant]
     Active Substance: LANSOPRAZOLE
     Indication: PROPHYLAXIS
     Dates: start: 20180919, end: 20181105
  19. RASBURICASE [Concomitant]
     Active Substance: RASBURICASE
     Indication: PROPHYLAXIS
  20. IMIPENEM AND CILASTATIN [Concomitant]
     Active Substance: CILASTATIN SODIUM\IMIPENEM
     Dates: start: 20181031, end: 20181105
  21. ACIDE TRANEXAMIQUE [Concomitant]
     Indication: PRODUCT USED FOR UNKNOWN INDICATION
     Dates: end: 20181108
  22. PARACETAMOL [Concomitant]
     Active Substance: ACETAMINOPHEN
     Indication: PRODUCT USED FOR UNKNOWN INDICATION
     Dates: end: 20181108

REACTIONS (11)
  - Pneumocystis jirovecii pneumonia [Unknown]
  - General physical health deterioration [Fatal]
  - Coma [Fatal]
  - Anaemia [Recovering/Resolving]
  - Bronchopulmonary aspergillosis [Not Recovered/Not Resolved]
  - Thrombocytopenia [Not Recovered/Not Resolved]
  - Neutropenia [Not Recovered/Not Resolved]
  - Chronic lymphocytic leukaemia [Unknown]
  - Oral infection [Recovering/Resolving]
  - Off label use [Unknown]
  - Granulicatella bacteraemia [Not Recovered/Not Resolved]

NARRATIVE: CASE EVENT DATE: 20181004
